FAERS Safety Report 4597534-6 (Version None)
Quarter: 2005Q1

REPORT INFORMATION
  Report Type: 
  Country: None (occurrence: None)
  Receive Date: 20050228
  Receipt Date: 20050228
  Transmission Date: 20050727
  Serious: Yes (Death)
  Sender: FDA-Public Use
  Company Number: None

PATIENT
  Sex: Male
  Weight: 41.8 kg

DRUGS (2)
  1. CYTARABINE [Suspect]
     Indication: ACUTE LYMPHOCYTIC LEUKAEMIA
     Dosage: 3GM/M2/DOSE IV X 8 DOSES
     Route: 042
     Dates: start: 20041207, end: 20041214
  2. L-ASPARGINASE [Suspect]
     Indication: ACUTE LYMPHOCYTIC LEUKAEMIA
     Dosage: 6000 UNITS/M2  IM X 2
     Route: 030
     Dates: start: 20041207, end: 20041214

REACTIONS (4)
  - ALPHA HAEMOLYTIC STREPTOCOCCAL INFECTION [None]
  - FEBRILE NEUTROPENIA [None]
  - SEPTIC SHOCK [None]
  - STREPTOCOCCAL BACTERAEMIA [None]
